FAERS Safety Report 23699149 (Version 1)
Quarter: 2024Q2

REPORT INFORMATION
  Report Type: Spontaneous
  Country: FR (occurrence: FR)
  Receive Date: 20240402
  Receipt Date: 20240402
  Transmission Date: 20240716
  Serious: Yes (Hospitalization, Disabling, Other)
  Sender: FDA-Public Use
  Company Number: FR-THERAMEX-2024000373

PATIENT
  Age: 53 Year
  Sex: Female

DRUGS (35)
  1. NOMEGESTROL [Suspect]
     Active Substance: NOMEGESTROL
     Indication: Heavy menstrual bleeding
     Dosage: UNK
     Route: 065
     Dates: start: 20190318
  2. NOMEGESTROL [Suspect]
     Active Substance: NOMEGESTROL
     Indication: Intermenstrual bleeding
  3. LEVETIRACETAM [Suspect]
     Active Substance: LEVETIRACETAM
     Indication: Epilepsy
     Dosage: UNK
     Route: 048
     Dates: start: 20211125
  4. LEVETIRACETAM [Suspect]
     Active Substance: LEVETIRACETAM
     Dosage: UNK (START DATE: 09-MAY-2022)
     Route: 048
  5. NOMEGESTROL ACETATE [Suspect]
     Active Substance: NOMEGESTROL ACETATE
     Indication: Heavy menstrual bleeding
     Dosage: UNK
     Route: 065
     Dates: start: 20190516
  6. NOMEGESTROL ACETATE [Suspect]
     Active Substance: NOMEGESTROL ACETATE
     Dosage: UNK
     Route: 048
     Dates: start: 20190221
  7. NOMEGESTROL ACETATE [Suspect]
     Active Substance: NOMEGESTROL ACETATE
     Dosage: UNK
     Route: 065
     Dates: start: 201911
  8. NOMEGESTROL ACETATE [Suspect]
     Active Substance: NOMEGESTROL ACETATE
     Dosage: UNK
     Route: 065
     Dates: start: 20190806
  9. NOMEGESTROL ACETATE [Suspect]
     Active Substance: NOMEGESTROL ACETATE
     Dosage: UNK
     Route: 065
     Dates: start: 20190711
  10. NOMEGESTROL ACETATE [Suspect]
     Active Substance: NOMEGESTROL ACETATE
     Dosage: UNK
     Route: 065
     Dates: start: 20190411
  11. NOMEGESTROL ACETATE [Suspect]
     Active Substance: NOMEGESTROL ACETATE
     Dosage: UNK
     Route: 048
     Dates: start: 20210630
  12. NOMEGESTROL ACETATE [Suspect]
     Active Substance: NOMEGESTROL ACETATE
     Indication: Intermenstrual bleeding
     Dosage: UNK
     Route: 065
     Dates: start: 20120810
  13. NOMEGESTROL ACETATE [Suspect]
     Active Substance: NOMEGESTROL ACETATE
     Dosage: UNK
     Route: 065
     Dates: start: 20130105
  14. NOMEGESTROL ACETATE [Suspect]
     Active Substance: NOMEGESTROL ACETATE
     Dosage: UNK
     Route: 065
     Dates: start: 20131204
  15. NOMEGESTROL ACETATE [Suspect]
     Active Substance: NOMEGESTROL ACETATE
     Dosage: UNK
     Route: 065
     Dates: start: 20141112
  16. NOMEGESTROL ACETATE [Suspect]
     Active Substance: NOMEGESTROL ACETATE
     Dosage: UNK
     Route: 065
     Dates: start: 20150603
  17. NOMEGESTROL ACETATE [Suspect]
     Active Substance: NOMEGESTROL ACETATE
     Dosage: UNK
     Route: 065
     Dates: start: 20151221
  18. NOMEGESTROL ACETATE [Suspect]
     Active Substance: NOMEGESTROL ACETATE
     Dosage: UNK
     Route: 065
     Dates: start: 20160713
  19. NOMEGESTROL ACETATE [Suspect]
     Active Substance: NOMEGESTROL ACETATE
     Dosage: UNK
     Route: 065
     Dates: start: 20180215
  20. NOMEGESTROL ACETATE [Suspect]
     Active Substance: NOMEGESTROL ACETATE
     Dosage: UNK
     Route: 065
     Dates: start: 20181108
  21. NOMEGESTROL ACETATE [Suspect]
     Active Substance: NOMEGESTROL ACETATE
     Indication: Product used for unknown indication
     Dosage: UNK
     Route: 048
     Dates: start: 20201017
  22. NOMEGESTROL ACETATE [Suspect]
     Active Substance: NOMEGESTROL ACETATE
     Dosage: UNK
     Route: 048
     Dates: start: 20201118
  23. NOMEGESTROL ACETATE [Suspect]
     Active Substance: NOMEGESTROL ACETATE
     Dosage: UNK
     Route: 048
     Dates: start: 20200925
  24. NOMEGESTROL ACETATE [Suspect]
     Active Substance: NOMEGESTROL ACETATE
     Dosage: UNK
     Route: 048
     Dates: start: 20201216
  25. NOMEGESTROL ACETATE [Suspect]
     Active Substance: NOMEGESTROL ACETATE
     Dosage: UNK
     Route: 048
     Dates: start: 20210113
  26. NOMEGESTROL ACETATE [Suspect]
     Active Substance: NOMEGESTROL ACETATE
     Dosage: UNK
     Route: 065
     Dates: start: 20210409
  27. NOMEGESTROL ACETATE [Suspect]
     Active Substance: NOMEGESTROL ACETATE
     Dosage: UNK
     Route: 048
     Dates: start: 20210624
  28. NOMEGESTROL ACETATE [Suspect]
     Active Substance: NOMEGESTROL ACETATE
     Dosage: UNK
     Route: 048
     Dates: start: 20210522
  29. NOMEGESTROL ACETATE [Suspect]
     Active Substance: NOMEGESTROL ACETATE
     Dosage: UNK
     Route: 048
     Dates: start: 20210210
  30. NOMEGESTROL ACETATE [Suspect]
     Active Substance: NOMEGESTROL ACETATE
     Dosage: UNK
     Route: 048
     Dates: start: 20210312
  31. CHLORMADINONE ACETATE [Suspect]
     Active Substance: CHLORMADINONE ACETATE
     Indication: Intermenstrual bleeding
     Dosage: UNK
     Route: 048
     Dates: start: 20101101, end: 201012
  32. KEPPRA [Suspect]
     Active Substance: LEVETIRACETAM
     Indication: Epilepsy
     Dosage: 2 DOSAGE FORM, QD (TWO KEPPRA TABLETS PER DAY)
     Route: 065
     Dates: start: 20220626
  33. PROMEGESTONE [Suspect]
     Active Substance: PROMEGESTONE
     Indication: Product used for unknown indication
     Dosage: UNK
     Route: 048
     Dates: start: 20190221
  34. PROMEGESTONE [Suspect]
     Active Substance: PROMEGESTONE
     Dosage: UNK
     Route: 048
     Dates: start: 201911
  35. PROMEGESTONE [Suspect]
     Active Substance: PROMEGESTONE
     Dosage: UNK
     Route: 048
     Dates: start: 20210409

REACTIONS (11)
  - Meningioma [Recovered/Resolved with Sequelae]
  - Mental disorder [Unknown]
  - Reading disorder [Unknown]
  - Language disorder [Not Recovered/Not Resolved]
  - Impaired quality of life [Unknown]
  - Cognitive disorder [Unknown]
  - Malaise [Unknown]
  - Aphasia [Unknown]
  - Oedema [Unknown]
  - Disturbance in attention [Unknown]
  - Asthenia [Not Recovered/Not Resolved]

NARRATIVE: CASE EVENT DATE: 20210906
